FAERS Safety Report 5076482-1 (Version None)
Quarter: 2006Q3

REPORT INFORMATION
  Report Type: 
  Country: None (occurrence: None)
  Receive Date: 20060810
  Receipt Date: 20060424
  Transmission Date: 20061208
  Serious: Yes (Hospitalization)
  Sender: FDA-Public Use
  Company Number: US-BAYER-200611735BCC

PATIENT
  Age: 62 Year
  Sex: Female

DRUGS (3)
  1. ALEVE (CAPLET) [Suspect]
     Indication: RHEUMATOID ARTHRITIS
     Route: 048
  2. DIABINESE [Concomitant]
  3. VIOXX [Concomitant]

REACTIONS (1)
  - NEPHROLITHIASIS [None]
